FAERS Safety Report 4780339-0 (Version None)
Quarter: 2005Q3

REPORT INFORMATION
  Report Type: 
  Country: None (occurrence: None)
  Receive Date: 20050926
  Receipt Date: 20050926
  Transmission Date: 20060218
  Serious: Yes (Hospitalization)
  Sender: FDA-Public Use
  Company Number: None

PATIENT
  Age: 87 Year
  Sex: Male
  Weight: 51 kg

DRUGS (1)
  1. REMICADE [Suspect]
     Indication: RHEUMATOID ARTHRITIS
     Dosage: IV DRIP
     Route: 041
     Dates: start: 20050210, end: 20050210

REACTIONS (5)
  - CHILLS [None]
  - CYANOSIS [None]
  - FEELING COLD [None]
  - INFUSION RELATED REACTION [None]
  - TREMOR [None]
